FAERS Safety Report 7558328-2 (Version None)
Quarter: 2011Q2

REPORT INFORMATION
  Report Type: 
  Country: None (occurrence: None)
  Receive Date: 20110620
  Receipt Date: 20110610
  Transmission Date: 20111010
  Serious: Yes (Life-Threatening, Hospitalization)
  Sender: FDA-Public Use
  Company Number: IT-ELI_LILLY_AND_COMPANY-IT201101001141

PATIENT
  Sex: Male

DRUGS (3)
  1. CISPLATIN [Concomitant]
     Indication: LUNG ADENOCARCINOMA METASTATIC
     Dosage: 100 MG, UNKNOWN
     Route: 042
     Dates: start: 20101214, end: 20101214
  2. ALIMTA [Suspect]
     Indication: LUNG ADENOCARCINOMA METASTATIC
     Dosage: 500 MG, UNKNOWN
     Route: 042
     Dates: start: 20101214, end: 20101214
  3. STEROID ANTIBACTERIALS [Concomitant]
     Dosage: UNK, UNKNOWN
     Route: 065

REACTIONS (5)
  - HYPOCALCAEMIA [None]
  - THROMBOCYTOPENIA [None]
  - LEUKOPENIA [None]
  - FEBRILE BONE MARROW APLASIA [None]
  - NEUTROPENIA [None]
